FAERS Safety Report 8496163 (Version 2)
Quarter: 2013Q1

REPORT INFORMATION
  Report Type: Spontaneous
  Country: US (occurrence: US)
  Receive Date: 20120405
  Receipt Date: 20130321
  Transmission Date: 20140127
  Serious: Yes (Hospitalization)
  Sender: FDA-Public Use
  Company Number: US-GLAXOSMITHKLINE-A0889292A

PATIENT
  Age: 59 Year
  Sex: Male

DRUGS (1)
  1. AVANDIA [Suspect]
     Indication: DIABETES MELLITUS
     Dosage: 4MG THREE TIMES PER DAY
     Route: 048
     Dates: start: 1999, end: 20071008

REACTIONS (5)
  - Myocardial infarction [Not Recovered/Not Resolved]
  - Renal failure [Unknown]
  - Congestive cardiomyopathy [Unknown]
  - Cardiac failure congestive [Unknown]
  - Arteriosclerosis coronary artery [Unknown]
